APPROVED DRUG PRODUCT: NADOLOL
Active Ingredient: NADOLOL
Strength: 80MG
Dosage Form/Route: TABLET;ORAL
Application: A203455 | Product #003 | TE Code: AB
Applicant: INVAGEN PHARMACEUTICALS INC
Approved: Dec 18, 2015 | RLD: No | RS: Yes | Type: RX